FAERS Safety Report 8547371-2 (Version None)
Quarter: 2012Q3

REPORT INFORMATION
  Report Type: 
  Country: None (occurrence: None)
  Receive Date: 20120727
  Receipt Date: 20120417
  Transmission Date: 20120928
  Serious: No
  Sender: FDA-Public Use
  Company Number: US-ASTRAZENECA-2012SE19865

PATIENT
  Age: 53 Year
  Sex: Female
  Weight: 134.7 kg

DRUGS (4)
  1. SEROQUEL [Suspect]
     Route: 048
     Dates: start: 20120101
  2. CYMBALTA [Concomitant]
  3. TRAZODONE HCL [Concomitant]
  4. SEROQUEL [Suspect]
     Indication: BIPOLAR DISORDER
     Route: 048
     Dates: start: 20110101, end: 20120101

REACTIONS (5)
  - NERVOUSNESS [None]
  - ANXIETY [None]
  - SOMNOLENCE [None]
  - INTENTIONAL DRUG MISUSE [None]
  - WEIGHT INCREASED [None]
